FAERS Safety Report 5897994-4 (Version None)
Quarter: 2008Q3

REPORT INFORMATION
  Report Type: 
  Country: None (occurrence: None)
  Receive Date: 20080925
  Receipt Date: 20080916
  Transmission Date: 20090109
  Serious: Yes (Hospitalization)
  Sender: FDA-Public Use
  Company Number: FR-ASTRAZENECA-2008CG01148

PATIENT
  Age: 10128 Day
  Sex: Female

DRUGS (1)
  1. ZOLADEX [Suspect]
     Indication: BREAST CANCER FEMALE
     Route: 058
     Dates: start: 20080315

REACTIONS (2)
  - ABORTION INDUCED [None]
  - UNWANTED PREGNANCY [None]
